FAERS Safety Report 7319528-X (Version None)
Quarter: 2011Q1

REPORT INFORMATION
  Report Type: 
  Country: None (occurrence: None)
  Receive Date: 20110228
  Receipt Date: 20100504
  Transmission Date: 20110831
  Serious: No
  Sender: FDA-Public Use
  Company Number: A0857913A

PATIENT
  Age: 37 Year
  Sex: Male

DRUGS (3)
  1. LAMICTAL [Suspect]
     Indication: MIGRAINE
     Dosage: 10MG PER DAY
     Route: 048
     Dates: start: 20100406, end: 20100406
  2. ZONEGRAN [Concomitant]
  3. AMITRIPTYLINE HCL [Concomitant]

REACTIONS (4)
  - RASH MACULAR [None]
  - PRURITUS [None]
  - NASOPHARYNGITIS [None]
  - SINUS OPERATION [None]
